FAERS Safety Report 7944097-0 (Version None)
Quarter: 2011Q4

REPORT INFORMATION
  Report Type: 
  Country: None (occurrence: None)
  Receive Date: 20111128
  Receipt Date: 20111116
  Transmission Date: 20120403
  Serious: Yes (Congenital Anomaly)
  Sender: FDA-Public Use
  Company Number: DE-ASTRAZENECA-2011SE69600

PATIENT
  Sex: Male
  Weight: 2.9 kg

DRUGS (12)
  1. ALBUTEROL SULFATE AUTOHALER [Concomitant]
     Indication: HYPERSENSITIVITY
     Route: 064
     Dates: start: 20091114, end: 20100129
  2. NEPRESOL [Concomitant]
     Indication: HYPERTENSION
     Route: 064
  3. FUSIDINSURE [Concomitant]
     Indication: BACTERIAL INFECTION
     Route: 064
     Dates: start: 20100113, end: 20100116
  4. ACETYLSALICYLSURE [Concomitant]
     Indication: INFERTILITY FEMALE
     Route: 064
  5. METOPROLOL TARTRATE [Suspect]
     Indication: HYPERTENSION
     Route: 064
     Dates: start: 20091016, end: 20100712
  6. CEFUROXIME [Concomitant]
     Indication: BRONCHOPNEUMONIA
     Route: 064
     Dates: start: 20091114, end: 20091123
  7. METHYLDOPA [Suspect]
     Indication: HYPERTENSION
     Route: 064
     Dates: start: 20091016, end: 20100712
  8. FOLIO FORTE [Concomitant]
     Indication: PROPHYLAXIS OF NEURAL TUBE DEFECT
     Dosage: 0.8 MG/DAY,( BIS 0.4)
     Route: 064
     Dates: start: 20091016, end: 20100628
  9. METOPROLOL TARTRATE [Suspect]
     Route: 064
  10. METHYLDOPA [Suspect]
     Route: 064
  11. IMPFSTOFF GRIPPE/ SAISONALE [Concomitant]
     Indication: IMMUNISATION
     Dosage: 15 DAYS PRECONCEPTIONAL
     Route: 064
  12. PREDNISOLONE [Concomitant]
     Indication: INFERTILITY FEMALE
     Route: 064
     Dates: start: 20091016, end: 20100114

REACTIONS (1)
  - TALIPES [None]
